FAERS Safety Report 19053428 (Version 1)
Quarter: 2021Q1

REPORT INFORMATION
  Report Type: Report from Study
  Country: FR (occurrence: FR)
  Receive Date: 20210324
  Receipt Date: 20210324
  Transmission Date: 20210420
  Serious: Yes (Death)
  Sender: FDA-Public Use
  Company Number: FR-MYLANLABS-2021M1017662

PATIENT

DRUGS (2)
  1. DEXTROSE. [Concomitant]
     Active Substance: DEXTROSE
     Indication: VEHICLE SOLUTION USE
     Dosage: INFUSION OF OXALIPLATIN IN 2 L/M2...
     Route: 033
  2. OXALIPLATIN. [Suspect]
     Active Substance: OXALIPLATIN
     Indication: COLORECTAL CANCER METASTATIC
     Dosage: INFUSION OF OXALIPLATIN IN 2 L/M2..
     Route: 033

REACTIONS (1)
  - Cardiac failure [Fatal]
